FAERS Safety Report 18232178 (Version 1)
Quarter: 2020Q3

REPORT INFORMATION
  Report Type: Spontaneous
  Country: US (occurrence: US)
  Receive Date: 20200903
  Receipt Date: 20200903
  Transmission Date: 20201103
  Serious: Yes (Disabling)
  Sender: FDA-Public Use
  Company Number: None

PATIENT
  Age: 36 Year
  Sex: Female
  Weight: 86.18 kg

DRUGS (1)
  1. HYDROCODONE, 10 MG ACTAVIS [Suspect]
     Active Substance: HYDROCODONE

REACTIONS (14)
  - Implant site pain [None]
  - Neck pain [None]
  - Headache [None]
  - Sensory disturbance [None]
  - Arthralgia [None]
  - Pain in extremity [None]
  - Swelling [None]
  - Hypoaesthesia [None]
  - Back pain [None]
  - Pruritus [None]
  - Implant site induration [None]
  - Rash [None]
  - Sleep apnoea syndrome [None]
  - Muscle strain [None]

NARRATIVE: CASE EVENT DATE: 20171017
